FAERS Safety Report 7465188-7 (Version None)
Quarter: 2011Q2

REPORT INFORMATION
  Report Type: 
  Country: None (occurrence: None)
  Receive Date: 20110509
  Receipt Date: 20110503
  Transmission Date: 20111010
  Serious: Yes (Hospitalization, Other)
  Sender: FDA-Public Use
  Company Number: GB-PFIZER INC-2011086108

PATIENT
  Age: 48 Year
  Sex: Male

DRUGS (10)
  1. METHYLPREDNISOLONE [Suspect]
     Indication: LUNG TRANSPLANT
  2. ANTILYMPHOCYTE GLOBULIN [Suspect]
     Indication: LUNG TRANSPLANT
  3. CYCLOSPORINE [Suspect]
     Dosage: 375 MG, 1X/DAY
  4. METHYLPREDNISOLONE [Suspect]
     Indication: IMMUNOSUPPRESSION
  5. MYCOPHENOLATE MOFETIL [Suspect]
     Indication: LUNG TRANSPLANT
     Dosage: 2.25 G, PER DAY
  6. PREDNISOLONE [Suspect]
     Dosage: 0.2 MG/KG, DAY
  7. IMMUNE GLOBULIN (HUMAN) [Suspect]
     Indication: IMMUNOSUPPRESSION
  8. CYCLOSPORINE [Suspect]
     Indication: LUNG TRANSPLANT
     Dosage: 375 MG, DAY
  9. PREDNISOLONE [Suspect]
     Indication: LUNG TRANSPLANT
     Dosage: 1 MG/KG, DAY
  10. MYCOPHENOLATE MOFETIL [Suspect]
     Dosage: 2.25 G, 1X/DAY

REACTIONS (2)
  - CYTOMEGALOVIRUS INFECTION [None]
  - AORTIC DISSECTION [None]
